FAERS Safety Report 9380845 (Version 1)
Quarter: 2013Q3

REPORT INFORMATION
  Report Type: Spontaneous
  Country: IT (occurrence: IT)
  Receive Date: 20130702
  Receipt Date: 20130702
  Transmission Date: 20140515
  Serious: Yes (Life-Threatening)
  Sender: FDA-Public Use
  Company Number: IT-MYLANLABS-2013S1013839

PATIENT
  Age: 86 Year
  Sex: Female

DRUGS (3)
  1. CIPROFLOXACIN [Suspect]
     Indication: INFECTION
     Route: 048
     Dates: start: 20130531, end: 20130605
  2. CLEXANE [Concomitant]
     Indication: PRODUCT USED FOR UNKNOWN INDICATION
  3. RAMIPRIL [Concomitant]
     Indication: PRODUCT USED FOR UNKNOWN INDICATION
     Dates: start: 20130530, end: 20130605

REACTIONS (2)
  - Renal failure acute [Recovered/Resolved with Sequelae]
  - Renal tubular necrosis [Recovered/Resolved with Sequelae]
